FAERS Safety Report 6211804-7 (Version None)
Quarter: 2009Q2

REPORT INFORMATION
  Report Type: 
  Country: None (occurrence: None)
  Receive Date: 20090528
  Receipt Date: 20090514
  Transmission Date: 20091009
  Serious: No
  Sender: FDA-Public Use
  Company Number: 2009-196773-NL

PATIENT
  Sex: 0

DRUGS (5)
  1. MIRTAZAPINE [Suspect]
     Dosage: DF TRANSPLACENTAL
     Route: 064
  2. SERTRALINE HCL [Suspect]
  3. FOLIC ACID [Suspect]
  4. VITAMINS [Suspect]
  5. IRON PREPARATIONS [Suspect]

REACTIONS (4)
  - DRUG EXPOSURE DURING PREGNANCY [None]
  - MATERNAL DRUGS AFFECTING FOETUS [None]
  - PERSISTENT FOETAL CIRCULATION [None]
  - PREMATURE BABY [None]
